FAERS Safety Report 24719426 (Version 1)
Quarter: 2024Q4

REPORT INFORMATION
  Report Type: Spontaneous
  Country: US (occurrence: US)
  Receive Date: 20241211
  Receipt Date: 20241211
  Transmission Date: 20250115
  Serious: No
  Sender: AMGEN
  Company Number: US-AMGEN-USASP2024240447

PATIENT
  Age: 66 Year
  Sex: Female

DRUGS (5)
  1. PREDNISONE [Suspect]
     Active Substance: PREDNISONE
     Indication: Lichen planopilaris
     Dosage: UNK
     Route: 048
  2. PREDNISONE [Suspect]
     Active Substance: PREDNISONE
     Dosage: UNK (TAPERED OFF)
     Route: 048
  3. ACITRETIN [Concomitant]
     Active Substance: ACITRETIN
     Indication: Lichen planopilaris
     Dosage: 25 MILLIGRAM, 3 TIMES/WK
     Route: 065
  4. ACITRETIN [Concomitant]
     Active Substance: ACITRETIN
     Dosage: 25 MILLIGRAM, 5 TIMES/WK
     Route: 065
  5. ACITRETIN [Concomitant]
     Active Substance: ACITRETIN
     Dosage: 25 MILLIGRAM, 3 TIMES/WK
     Route: 065

REACTIONS (4)
  - Drug effective for unapproved indication [Unknown]
  - Skin plaque [Unknown]
  - Alopecia [Unknown]
  - Off label use [Unknown]
